FAERS Safety Report 7157095-4 (Version None)
Quarter: 2010Q4

REPORT INFORMATION
  Report Type: 
  Country: None (occurrence: None)
  Receive Date: 20101214
  Receipt Date: 20100111
  Transmission Date: 20110411
  Serious: No
  Sender: FDA-Public Use
  Company Number: US-ASTRAZENECA-2010SE01194

PATIENT

DRUGS (2)
  1. CRESTOR [Suspect]
     Dosage: TITRATING FROM 10MG TO 20MG
     Route: 048
  2. METFORMIN [Interacting]

REACTIONS (2)
  - BLOOD GLUCOSE INCREASED [None]
  - DRUG INTERACTION [None]
